FAERS Safety Report 5520340-2 (Version None)
Quarter: 2007Q4

REPORT INFORMATION
  Report Type: 
  Country: None (occurrence: None)
  Receive Date: 20071116
  Receipt Date: 20071116
  Transmission Date: 20080405
  Serious: Yes (Death)
  Sender: FDA-Public Use
  Company Number: None

PATIENT
  Age: 66 Year
  Sex: Male
  Weight: 77.1115 kg

DRUGS (2)
  1. PERCOCET [Suspect]
     Indication: PAIN
     Dosage: 10 9-24-03 9 9-23-03
     Dates: start: 20030921, end: 20030927
  2. ZOCOR [Concomitant]

REACTIONS (2)
  - BLOOD BILIRUBIN INCREASED [None]
  - INCORRECT DOSE ADMINISTERED [None]
